FAERS Safety Report 4533494-1 (Version None)
Quarter: 2004Q4

REPORT INFORMATION
  Report Type: 
  Country: None (occurrence: None)
  Receive Date: 20041221
  Receipt Date: 20041216
  Transmission Date: 20050328
  Serious: Yes (Other)
  Sender: FDA-Public Use
  Company Number: PHNU2004DE04235

PATIENT
  Age: 70 Year
  Sex: Male

DRUGS (2)
  1. LAMISIL [Suspect]
     Indication: NAIL TINEA
     Dosage: 0.5 DF, QD
     Route: 048
     Dates: start: 20041101
  2. LAMISIL [Suspect]
     Dosage: 0.25 DF, QD

REACTIONS (1)
  - HYPERTENSION [None]
